FAERS Safety Report 12628220 (Version 1)
Quarter: 2016Q3

REPORT INFORMATION
  Report Type: Spontaneous
  Country: US (occurrence: US)
  Receive Date: 20160808
  Receipt Date: 20160808
  Transmission Date: 20161109
  Serious: No
  Sender: FDA-Public Use
  Company Number: US-ASTRAZENECA-2016SE79521

PATIENT
  Age: 18186 Day
  Sex: Female
  Weight: 90.7 kg

DRUGS (1)
  1. SYMBICORT [Suspect]
     Active Substance: BUDESONIDE\FORMOTEROL FUMARATE DIHYDRATE
     Indication: STATUS ASTHMATICUS
     Dosage: 80/4.5MCG TWO PUFFS TWICE DAILY
     Route: 055
     Dates: start: 20160711

REACTIONS (2)
  - Dysgeusia [Unknown]
  - Lip injury [Unknown]

NARRATIVE: CASE EVENT DATE: 20160716
